FAERS Safety Report 10218575 (Version 1)
Quarter: 2014Q2

REPORT INFORMATION
  Report Type: Spontaneous
  Country: PT (occurrence: PT)
  Receive Date: 20140605
  Receipt Date: 20140605
  Transmission Date: 20141212
  Serious: Yes (Other)
  Sender: FDA-Public Use
  Company Number: PT-ABBVIE-14K-130-1243242-00

PATIENT
  Age: 65 Year
  Sex: Male
  Weight: 71 kg

DRUGS (2)
  1. LUCRIN DEPOT [Suspect]
     Indication: PROSTATE CANCER
     Route: 030
     Dates: start: 20061010, end: 20061010
  2. VENTILAN [Concomitant]
     Indication: PRODUCT USED FOR UNKNOWN INDICATION

REACTIONS (2)
  - Hypersensitivity [Recovered/Resolved]
  - Laryngeal oedema [Recovered/Resolved]
